FAERS Safety Report 9723369 (Version 1)
Quarter: 2013Q4

REPORT INFORMATION
  Report Type: Spontaneous
  Country: US (occurrence: US)
  Receive Date: 20131202
  Receipt Date: 20131202
  Transmission Date: 20140711
  Serious: No
  Sender: FDA-Public Use
  Company Number: US-GLAXOSMITHKLINE-A1035742A

PATIENT
  Age: 3 Year
  Sex: Male

DRUGS (1)
  1. FLOVENT [Suspect]
     Indication: PRODUCT USED FOR UNKNOWN INDICATION
     Route: 055
     Dates: start: 2011, end: 20130706

REACTIONS (3)
  - Rash erythematous [Recovering/Resolving]
  - Rash [Recovering/Resolving]
  - Dermatitis contact [Recovering/Resolving]
